FAERS Safety Report 6198926-4 (Version None)
Quarter: 2009Q2

REPORT INFORMATION
  Report Type: 
  Country: None (occurrence: None)
  Receive Date: 20090522
  Receipt Date: 20090515
  Transmission Date: 20091009
  Serious: Yes (Life-Threatening, Hospitalization)
  Sender: FDA-Public Use
  Company Number: DE-ELI_LILLY_AND_COMPANY-DE200905003400

PATIENT
  Sex: Female

DRUGS (6)
  1. BYETTA [Suspect]
     Indication: OBESITY
     Dosage: 10 UG, 2/D
     Route: 058
     Dates: start: 20070601, end: 20080825
  2. METFORMIN HCL [Concomitant]
     Dosage: UNK, 2/D
     Route: 065
  3. LEVOTHYROXINE SODIUM [Concomitant]
     Dosage: UNK, DAILY (1/D)
     Route: 065
  4. ENALAPRIL MALEATE [Concomitant]
     Dosage: 10 MG, 2/D
     Route: 065
  5. METO-TABLINEN [Concomitant]
     Dosage: UNK, DAILY (1/D)
     Route: 065
  6. OMEPRAZOL [Concomitant]
     Dosage: UNK, DAILY (1/D)
     Route: 065

REACTIONS (1)
  - MYASTHENIA GRAVIS [None]
